FAERS Safety Report 8355303-5 (Version None)
Quarter: 2012Q2

REPORT INFORMATION
  Report Type: 
  Country: None (occurrence: None)
  Receive Date: 20120511
  Receipt Date: 20120501
  Transmission Date: 20120825
  Serious: No
  Sender: FDA-Public Use
  Company Number: US-BAYER-2012-045394

PATIENT
  Age: 54 Year
  Sex: Female
  Weight: 104 kg

DRUGS (3)
  1. NAPROXEN SODIUM [Suspect]
     Indication: ANALGESIC THERAPY
     Dosage: 2 U, QOD
     Route: 048
     Dates: start: 20120430, end: 20120430
  2. NEXIUM [Concomitant]
  3. METFORMIN HCL [Concomitant]

REACTIONS (7)
  - MUSCLE TWITCHING [None]
  - NIGHTMARE [None]
  - NERVOUSNESS [None]
  - MUSCLE SPASMS [None]
  - PSYCHOMOTOR HYPERACTIVITY [None]
  - FLUSHING [None]
  - RESTLESSNESS [None]
